FAERS Safety Report 15549805 (Version 1)
Quarter: 2018Q4

REPORT INFORMATION
  Report Type: Report from Study
  Country: US (occurrence: US)
  Receive Date: 20181025
  Receipt Date: 20181025
  Transmission Date: 20190205
  Serious: Yes (Other)
  Sender: FDA-Public Use
  Company Number: PHEH2018US044341

PATIENT
  Sex: Female

DRUGS (1)
  1. COSENTYX [Suspect]
     Active Substance: SECUKINUMAB
     Indication: PSORIATIC ARTHROPATHY
     Route: 058

REACTIONS (7)
  - Onychoclasis [Unknown]
  - Rash pustular [Unknown]
  - Drug ineffective [Unknown]
  - Blister [Unknown]
  - Mobility decreased [Unknown]
  - Pulmonary mass [Unknown]
  - Autoimmune disorder [Unknown]
